FAERS Safety Report 4721281-0 (Version None)
Quarter: 2005Q3

REPORT INFORMATION
  Report Type: 
  Country: None (occurrence: None)
  Receive Date: 20050721
  Receipt Date: 20030820
  Transmission Date: 20060218
  Serious: Yes (Other)
  Sender: FDA-Public Use
  Company Number: US-BRISTOL-MYERS SQUIBB COMPANY-12360483

PATIENT
  Age: 79 Year
  Sex: Female
  Weight: 61 kg

DRUGS (8)
  1. COUMADIN [Suspect]
     Indication: CEREBROVASCULAR ACCIDENT
     Dosage: DOSE VALUE:VARIED; 3MG X 3 DAYS/WEEK + 2MG X 4 DAYS/WEEK =17MG TOTAL AT PRESENT.
     Route: 048
  2. COUMADIN [Suspect]
     Indication: ATRIAL FIBRILLATION
     Dosage: DOSE VALUE:VARIED; 3MG X 3 DAYS/WEEK + 2MG X 4 DAYS/WEEK =17MG TOTAL AT PRESENT.
     Route: 048
  3. COUMADIN [Suspect]
     Indication: TRANSIENT ISCHAEMIC ATTACK
     Dosage: DOSE VALUE:VARIED; 3MG X 3 DAYS/WEEK + 2MG X 4 DAYS/WEEK =17MG TOTAL AT PRESENT.
     Route: 048
  4. BETAPACE [Concomitant]
  5. ESTER-C [Concomitant]
  6. MULTIVITAMIN [Concomitant]
  7. VITAMIN D [Concomitant]
  8. BETAMETHASONE [Concomitant]
     Dosage: EAR DROPS
     Route: 001

REACTIONS (5)
  - INTERNATIONAL NORMALISED RATIO FLUCTUATION [None]
  - INTERNATIONAL NORMALISED RATIO INCREASED [None]
  - TRANSIENT ISCHAEMIC ATTACK [None]
  - VAGINAL HAEMORRHAGE [None]
  - WEIGHT DECREASED [None]
